FAERS Safety Report 12094251 (Version 1)
Quarter: 2016Q1

REPORT INFORMATION
  Report Type: Spontaneous
  Country: US (occurrence: US)
  Receive Date: 20160219
  Receipt Date: 20160219
  Transmission Date: 20160526
  Serious: No
  Sender: FDA-Public Use
  Company Number: US-BRISTOL-MYERS SQUIBB COMPANY-19068717

PATIENT
  Age: 28 Year
  Sex: Female

DRUGS (5)
  1. METHOTREXATE [Suspect]
     Active Substance: METHOTREXATE
     Indication: METASTATIC CHORIOCARCINOMA
     Dosage: DAY 1
     Route: 065
     Dates: start: 200705
  2. VEPESID [Suspect]
     Active Substance: ETOPOSIDE
     Indication: METASTATIC CHORIOCARCINOMA
     Dosage: DAY 1 AND 2
     Route: 065
     Dates: start: 200705
  3. VINCRISTINE SULFATE. [Suspect]
     Active Substance: VINCRISTINE SULFATE
     Indication: METASTATIC CHORIOCARCINOMA
     Dosage: UNK
     Route: 065
     Dates: start: 200705
  4. DACTINOMYCIN [Suspect]
     Active Substance: DACTINOMYCIN
     Indication: METASTATIC CHORIOCARCINOMA
     Dosage: DAY 1 AND 2
     Route: 065
     Dates: start: 200705
  5. CYCLOPHOSPHAMIDE. [Suspect]
     Active Substance: CYCLOPHOSPHAMIDE
     Indication: METASTATIC CHORIOCARCINOMA
     Dosage: DAY 8
     Route: 065
     Dates: start: 200705

REACTIONS (3)
  - Off label use [Unknown]
  - Live birth [Unknown]
  - Maternal exposure during pregnancy [Recovered/Resolved]

NARRATIVE: CASE EVENT DATE: 20070816
